FAERS Safety Report 6303829-8 (Version None)
Quarter: 2009Q3

REPORT INFORMATION
  Report Type: 
  Country: None (occurrence: None)
  Receive Date: 20090807
  Receipt Date: 20090807
  Transmission Date: 20100115
  Serious: Yes (Other)
  Sender: FDA-Public Use
  Company Number: None

PATIENT
  Age: 73 Year
  Sex: Male
  Weight: 74 kg

DRUGS (2)
  1. EXENATIDE .25MG/ML BY AMYLIN PHARMACEUTICALS [Suspect]
     Indication: BLOOD GLUCOSE ABNORMAL
     Dosage: 25 ML HOUR  6 HOUR MAX   (9:25 - 10:25)
     Dates: start: 20090806
  2. EXENATIDE .25MG/ML BY AMYLIN PHARMACEUTICALS [Suspect]
     Indication: INTRAOPERATIVE CARE
     Dosage: 25 ML HOUR  6 HOUR MAX   (9:25 - 10:25)
     Dates: start: 20090806

REACTIONS (3)
  - BLOOD PRESSURE DECREASED [None]
  - ELECTROCARDIOGRAM ST SEGMENT DEPRESSION [None]
  - ISCHAEMIA [None]
